FAERS Safety Report 4752145-4 (Version None)
Quarter: 2005Q3

REPORT INFORMATION
  Report Type: 
  Country: None (occurrence: None)
  Receive Date: 20050825
  Receipt Date: 20050816
  Transmission Date: 20060218
  Serious: Yes (Other)
  Sender: FDA-Public Use
  Company Number: US-JNJFOC-20050702557

PATIENT
  Sex: Male
  Weight: 71.22 kg

DRUGS (3)
  1. CONCERTA [Suspect]
     Route: 048
     Dates: start: 20040404, end: 20050708
  2. CONCERTA [Suspect]
     Route: 048
     Dates: start: 20040404, end: 20050708
  3. CONCERTA [Suspect]
     Indication: ATTENTION DEFICIT/HYPERACTIVITY DISORDER
     Route: 048
     Dates: start: 20040404, end: 20050708

REACTIONS (1)
  - AUTOIMMUNE HEPATITIS [None]
